FAERS Safety Report 21672278 (Version 1)
Quarter: 2022Q4

REPORT INFORMATION
  Report Type: Report from Study
  Country: US (occurrence: US)
  Receive Date: 20221202
  Receipt Date: 20221202
  Transmission Date: 20230113
  Serious: No
  Sender: FDA-Public Use
  Company Number: US-ABBVIE-22K-163-4441384-00

PATIENT
  Age: 21 Year
  Sex: Male

DRUGS (3)
  1. SKYRIZI [Suspect]
     Active Substance: RISANKIZUMAB-RZAA
     Indication: Psoriasis
     Dosage: WEEK 4?150 MG
     Route: 058
     Dates: start: 20220720, end: 20220720
  2. SKYRIZI [Suspect]
     Active Substance: RISANKIZUMAB-RZAA
     Dosage: 150 MG
     Route: 058
     Dates: start: 20221006
  3. SKYRIZI [Suspect]
     Active Substance: RISANKIZUMAB-RZAA
     Dosage: WEEK 0?150 MG
     Route: 058
     Dates: start: 20220612, end: 20220612

REACTIONS (6)
  - Device issue [Unknown]
  - Pain [Recovered/Resolved]
  - Psoriasis [Recovered/Resolved]
  - Therapeutic product effect incomplete [Unknown]
  - Arthralgia [Unknown]
  - Psoriasis [Recovered/Resolved]

NARRATIVE: CASE EVENT DATE: 20220601
